FAERS Safety Report 9715797 (Version 1)
Quarter: 2013Q4

REPORT INFORMATION
  Report Type: Report from Study
  Country: CO (occurrence: CO)
  Receive Date: 20131127
  Receipt Date: 20131127
  Transmission Date: 20140711
  Serious: Yes (Other)
  Sender: FDA-Public Use
  Company Number: CO-ROCHE-1309412

PATIENT
  Age: 29 Year
  Sex: Female

DRUGS (2)
  1. CELLCEPT [Suspect]
     Indication: RENAL TRANSPLANT
     Route: 048
     Dates: start: 20010915
  2. TACROLIMUS [Concomitant]

REACTIONS (1)
  - Hypercreatinaemia [Recovering/Resolving]
